FAERS Safety Report 14044130 (Version 3)
Quarter: 2017Q4

REPORT INFORMATION
  Report Type: Spontaneous
  Country: IT (occurrence: IT)
  Receive Date: 20171004
  Receipt Date: 20171020
  Transmission Date: 20180321
  Serious: Yes (Other)
  Sender: FDA-Public Use
  Company Number: IT-ALLERGAN-1756082US

PATIENT
  Age: 70 Year
  Sex: Male

DRUGS (2)
  1. SILODOSIN - BP [Suspect]
     Active Substance: SILODOSIN
     Indication: PRODUCT USED FOR UNKNOWN INDICATION
     Dosage: UNK
     Route: 065
  2. AVODART [Suspect]
     Active Substance: DUTASTERIDE
     Indication: BENIGN PROSTATIC HYPERPLASIA
     Dosage: UNK
     Route: 048
     Dates: start: 20150315, end: 20150731

REACTIONS (2)
  - Prostatic specific antigen increased [Recovering/Resolving]
  - Prostate cancer [Unknown]

NARRATIVE: CASE EVENT DATE: 20150624
